FAERS Safety Report 5495073-1 (Version None)
Quarter: 2007Q4

REPORT INFORMATION
  Report Type: 
  Country: None (occurrence: None)
  Receive Date: 20071015
  Receipt Date: 20061130
  Transmission Date: 20080405
  Serious: Yes (Other)
  Sender: FDA-Public Use
  Company Number: S06-USA-05051-01

PATIENT
  Age: 48 Year
  Sex: Male

DRUGS (3)
  1. LEXAPRO [Suspect]
     Indication: ANXIETY
     Dosage: 10 MG QD PO
     Route: 048
     Dates: start: 20060901, end: 20060101
  2. LEXAPRO [Suspect]
     Indication: DEPRESSION
     Dosage: 10 MG QD PO
     Route: 048
     Dates: start: 20060901, end: 20060101
  3. LUNESTA [Concomitant]

REACTIONS (1)
  - SYNCOPE [None]
